FAERS Safety Report 6630792-2 (Version None)
Quarter: 2010Q1

REPORT INFORMATION
  Report Type: 
  Country: None (occurrence: None)
  Receive Date: 20100311
  Receipt Date: 20100215
  Transmission Date: 20100710
  Serious: Yes (Hospitalization)
  Sender: FDA-Public Use
  Company Number: PL-B.I. PHARMACEUTICALS,INC./RIDGEFIELD-2010-DE-00274GL

PATIENT
  Sex: Male

DRUGS (6)
  1. TELMISARTAN [Suspect]
     Indication: HYPERTENSION
     Route: 048
  2. BLINDED VACCINE INJECTION [Suspect]
     Route: 030
     Dates: start: 20091017, end: 20091017
  3. QUINAPRIL HYDROCHLORIDE [Suspect]
     Indication: HYPERTENSION
     Route: 048
  4. SINTROM [Suspect]
     Indication: ATRIAL FIBRILLATION
     Route: 048
  5. BISOPROLOL [Suspect]
     Indication: HYPERTENSION
     Route: 048
  6. AMILORIDE HCL AND HYDROCHLOROTHIAZIDE [Suspect]
     Indication: HYPERTENSION
     Route: 048

REACTIONS (2)
  - CARDIAC FAILURE [None]
  - HYPERTENSION [None]
